FAERS Safety Report 12633858 (Version 2)
Quarter: 2016Q4

REPORT INFORMATION
  Report Type: Spontaneous
  Country: FR (occurrence: FR)
  Receive Date: 20160809
  Receipt Date: 20161010
  Transmission Date: 20170207
  Serious: Yes (Other)
  Sender: FDA-Public Use
  Company Number: FR-PFIZER INC-2016373425

PATIENT
  Age: 69 Year
  Sex: Female

DRUGS (9)
  1. FLUOROURACIL. [Suspect]
     Active Substance: FLUOROURACIL
     Indication: RECTAL ADENOCARCINOMA
     Dosage: 400 MG/M2 FOR 15 MIN (CYCLIC)
     Route: 042
     Dates: start: 20160418
  2. ATORVASTATINE /01326101/ [Concomitant]
     Active Substance: ATORVASTATIN
     Dosage: 10 MG, 1X/DAY IN THE EVENING
  3. ALPRAZOLAM. [Concomitant]
     Active Substance: ALPRAZOLAM
     Dosage: 0.25 MG, 1X/DAY IN THE MORNING
  4. PAROXETINE. [Concomitant]
     Active Substance: PAROXETINE
     Dosage: 20 MG, 1X/DAY IN THE EVENING
  5. FLUOROURACIL. [Suspect]
     Active Substance: FLUOROURACIL
     Dosage: 2400 MG/M2 FOR 48 HOURS (CYCLIC)
     Route: 042
     Dates: start: 20160418
  6. CAMPTO [Suspect]
     Active Substance: IRINOTECAN
     Indication: RECTAL ADENOCARCINOMA
     Dosage: 180 MG/M2, CYCLIC,  (EVERY 15 DAYS)
     Route: 042
     Dates: start: 20160418
  7. AVASTIN [Suspect]
     Active Substance: BEVACIZUMAB
     Indication: RECTAL ADENOCARCINOMA
     Dosage: 5 MG/KG, CYCLIC (EVERY 15 DAYS)
     Route: 042
     Dates: start: 20160418
  8. KARDEGIC [Suspect]
     Active Substance: ASPIRIN LYSINE
     Indication: PRODUCT USED FOR UNKNOWN INDICATION
     Dosage: 1 DF, 1X/DAY IN THE MORNING
     Route: 048
  9. BISOPROLOL FUMARATE. [Concomitant]
     Active Substance: BISOPROLOL FUMARATE
     Dosage: 2.5 MG, 1X/DAY IN THE MORNING

REACTIONS (1)
  - Vascular purpura [Recovered/Resolved]

NARRATIVE: CASE EVENT DATE: 20160712
